FAERS Safety Report 24931775 (Version 1)
Quarter: 2025Q1

REPORT INFORMATION
  Report Type: Report from Study
  Country: US (occurrence: US)
  Receive Date: 20250205
  Receipt Date: 20250205
  Transmission Date: 20250409
  Serious: No
  Sender: EXELIXIS
  Company Number: US-EXELIXIS-CABO-24078776

PATIENT
  Sex: Female
  Weight: 59.279 kg

DRUGS (1)
  1. CABOMETYX [Suspect]
     Active Substance: CABOZANTINIB S-MALATE
     Indication: Renal cancer
     Dosage: 40 MG, QD
     Route: 048
     Dates: start: 20240322, end: 20240614

REACTIONS (3)
  - Hair colour changes [Unknown]
  - Palmar-plantar erythrodysaesthesia syndrome [Unknown]
  - Tooth disorder [Unknown]
